FAERS Safety Report 4516439-X (Version None)
Quarter: 2004Q4

REPORT INFORMATION
  Report Type: 
  Country: None (occurrence: None)
  Receive Date: 20041202
  Receipt Date: 20040709
  Transmission Date: 20050328
  Serious: No
  Sender: FDA-Public Use
  Company Number: US-GLAXOSMITHKLINE-A0517664A

PATIENT
  Age: 66 Year
  Sex: Female

DRUGS (6)
  1. AUGMENTIN '125' [Suspect]
     Indication: SKIN INFECTION
     Dosage: 2G TWICE PER DAY
     Route: 048
     Dates: start: 20040707
  2. NORVASC [Concomitant]
  3. DIOVAN [Concomitant]
  4. LIPITOR [Concomitant]
  5. ZOLOFT [Concomitant]
  6. TRAZODONE HCL [Concomitant]
     Route: 065

REACTIONS (2)
  - DIARRHOEA [None]
  - NAUSEA [None]
